FAERS Safety Report 5869676-6 (Version None)
Quarter: 2008Q3

REPORT INFORMATION
  Report Type: 
  Country: None (occurrence: None)
  Receive Date: 20080904
  Receipt Date: 20080821
  Transmission Date: 20090109
  Serious: Yes (Hospitalization)
  Sender: FDA-Public Use
  Company Number: US-ELI_LILLY_AND_COMPANY-US200808004298

PATIENT
  Sex: Female

DRUGS (1)
  1. FORTEO [Suspect]
     Indication: OSTEOPOROSIS
     Dates: start: 20070425

REACTIONS (5)
  - IMPAIRED HEALING [None]
  - LOWER LIMB FRACTURE [None]
  - PAIN [None]
  - PAIN IN EXTREMITY [None]
  - STRESS FRACTURE [None]
